FAERS Safety Report 7934798-2 (Version None)
Quarter: 2011Q4

REPORT INFORMATION
  Report Type: 
  Country: None (occurrence: None)
  Receive Date: 20111122
  Receipt Date: 20111114
  Transmission Date: 20120403
  Serious: Yes (Other)
  Sender: FDA-Public Use
  Company Number: US-ASTRAZENECA-2011SE65118

PATIENT
  Age: 62 Year
  Sex: Male

DRUGS (3)
  1. NEXIUM [Concomitant]
     Route: 048
  2. TOPROL-XL [Suspect]
     Route: 048
     Dates: start: 20110301
  3. TOPROL-XL [Suspect]
     Dosage: GENERIC
     Route: 048

REACTIONS (2)
  - LIMB INJURY [None]
  - MUSCULOSKELETAL DISCOMFORT [None]
